FAERS Safety Report 4295184-2 (Version None)
Quarter: 2004Q1

REPORT INFORMATION
  Report Type: 
  Country: None (occurrence: None)
  Receive Date: 20040216
  Receipt Date: 20040204
  Transmission Date: 20041129
  Serious: Yes (Other)
  Sender: FDA-Public Use
  Company Number: PHFR2004GB00952

PATIENT
  Sex: Female

DRUGS (2)
  1. LAMISIL [Suspect]
     Route: 048
  2. MIRTAZAPINE [Concomitant]
     Route: 065

REACTIONS (2)
  - DIZZINESS [None]
  - SYNCOPE [None]
